FAERS Safety Report 9981335 (Version 14)
Quarter: 2015Q1

REPORT INFORMATION
  Report Type: Report from Study
  Country: JP (occurrence: JP)
  Receive Date: 20140307
  Receipt Date: 20150212
  Transmission Date: 20150721
  Serious: Yes (Death, Life-Threatening, Hospitalization, Other)
  Sender: FDA-Public Use
  Company Number: JP-PFIZER INC-2013357508

PATIENT
  Age: 66 Year
  Sex: Male
  Weight: 57 kg

DRUGS (9)
  1. TORISEL [Concomitant]
     Active Substance: TEMSIROLIMUS
     Indication: METASTATIC RENAL CELL CARCINOMA
     Dosage: ONCE
     Route: 041
  2. ADALAT CC [Concomitant]
     Active Substance: NIFEDIPINE
     Indication: HYPERTENSION
     Dosage: 20 MG, 1X/DAY, ON AN AS-NEEDED BASIS
     Route: 048
     Dates: start: 20131107, end: 20131111
  3. AXITINIB [Suspect]
     Active Substance: AXITINIB
     Indication: METASTATIC RENAL CELL CARCINOMA
     Dosage: 5 MG, 2X/DAY AFTER MEALS
     Route: 048
     Dates: start: 20131111, end: 20131124
  4. AXITINIB [Suspect]
     Active Substance: AXITINIB
     Dosage: 3 MG, 2X/DAY, AFTER MEALS
     Route: 048
     Dates: start: 20140408, end: 20140417
  5. AXITINIB [Suspect]
     Active Substance: AXITINIB
     Dosage: 5 MG, 2X/DAY, AFTER MEALS
     Route: 048
     Dates: start: 20140224, end: 20140330
  6. ADALAT CC [Concomitant]
     Active Substance: NIFEDIPINE
     Dosage: 40 MG, 1X/DAY
     Route: 048
     Dates: start: 20131112
  7. ARTIST [Concomitant]
     Active Substance: CARVEDILOL
     Dosage: 10 MG, 1X/DAY
     Route: 048
  8. AXITINIB [Suspect]
     Active Substance: AXITINIB
     Dosage: 2 MG, 2X/DAY, AFTER MEALS
     Route: 048
     Dates: start: 20140127, end: 20140208
  9. AXITINIB [Suspect]
     Active Substance: AXITINIB
     Dosage: 7 MG, 2X/DAY
     Route: 048
     Dates: start: 20131125, end: 20131209

REACTIONS (10)
  - Diarrhoea [Recovered/Resolved]
  - Hypertension [Unknown]
  - Metastatic renal cell carcinoma [Fatal]
  - Acute prerenal failure [Recovered/Resolved]
  - Diarrhoea [Recovered/Resolved]
  - Dehydration [Recovered/Resolved]
  - Hyperkalaemia [Recovered/Resolved]
  - Acute prerenal failure [Recovered/Resolved]
  - Dehydration [Recovered/Resolved]
  - Disease progression [Fatal]

NARRATIVE: CASE EVENT DATE: 20131130
